FAERS Safety Report 4737109-9 (Version None)
Quarter: 2005Q3

REPORT INFORMATION
  Report Type: 
  Country: None (occurrence: None)
  Receive Date: 20050808
  Receipt Date: 20050729
  Transmission Date: 20060218
  Serious: Yes (Life-Threatening, Hospitalization)
  Sender: FDA-Public Use
  Company Number: DE-ABBOTT-05P-062-0307280-00

PATIENT
  Sex: Male

DRUGS (5)
  1. HUMIRA [Suspect]
     Indication: RHEUMATOID ARTHRITIS
     Route: 058
     Dates: start: 20040101, end: 20050601
  2. METHOTREXATE SODIUM [Concomitant]
     Indication: RHEUMATOID ARTHRITIS
     Route: 058
     Dates: start: 20050401
  3. COX2-INHIBITOR [Concomitant]
     Indication: RHEUMATOID ARTHRITIS
     Route: 048
  4. CORTICOIDS [Concomitant]
     Indication: RHEUMATOID ARTHRITIS
     Route: 048
  5. DURAGESIC-100 [Concomitant]
     Indication: RHEUMATOID ARTHRITIS
     Dosage: 1 PLASTER
     Route: 062

REACTIONS (6)
  - ARTHRALGIA [None]
  - GAS GANGRENE [None]
  - GENERAL PHYSICAL HEALTH DETERIORATION [None]
  - JOINT STIFFNESS [None]
  - JOINT SWELLING [None]
  - KNEE ARTHROPLASTY [None]
